FAERS Safety Report 7466063-4 (Version None)
Quarter: 2011Q2

REPORT INFORMATION
  Report Type: 
  Country: None (occurrence: None)
  Receive Date: 20110509
  Receipt Date: 20100630
  Transmission Date: 20111010
  Serious: No
  Sender: FDA-Public Use
  Company Number: US-ALEXION-A201000124

PATIENT
  Sex: Female

DRUGS (2)
  1. SOLIRIS [Suspect]
     Dosage: 900 MG, Q2W
     Route: 042
     Dates: start: 20080402
  2. SOLIRIS [Suspect]
     Indication: PAROXYSMAL NOCTURNAL HAEMOGLOBINURIA
     Dosage: 600 MG, QW
     Route: 042
     Dates: start: 20080305, end: 20080326

REACTIONS (4)
  - SENSORY DISTURBANCE [None]
  - BLOOD POTASSIUM [None]
  - SENSATION OF FOREIGN BODY [None]
  - ANEURYSM [None]
